FAERS Safety Report 6696202-4 (Version None)
Quarter: 2010Q2

REPORT INFORMATION
  Report Type: 
  Country: None (occurrence: None)
  Receive Date: 20100419
  Receipt Date: 20090702
  Transmission Date: 20101027
  Serious: No
  Sender: FDA-Public Use
  Company Number: 2009-00404

PATIENT
  Age: 63 Year
  Sex: Female
  Weight: 88.4514 kg

DRUGS (3)
  1. ZICAM COLD REMEDY GEL SWABS [Suspect]
     Dosage: QID - 10 DAYS
     Dates: start: 20090420, end: 20090430
  2. TOPROL-XL [Concomitant]
  3. DIOVAN [Concomitant]

REACTIONS (1)
  - ANOSMIA [None]
